FAERS Safety Report 9342815 (Version 1)
Quarter: 2013Q2

REPORT INFORMATION
  Report Type: Spontaneous
  Country: US (occurrence: US)
  Receive Date: 20130611
  Receipt Date: 20130611
  Transmission Date: 20140414
  Serious: No
  Sender: FDA-Public Use
  Company Number: US-PFIZER INC-2013175949

PATIENT
  Sex: Male

DRUGS (2)
  1. CHANTIX [Suspect]
     Indication: SMOKING CESSATION THERAPY
     Dosage: 0.5 MG, 1X/DAY
     Route: 048
     Dates: start: 20130605, end: 201306
  2. CHANTIX [Suspect]
     Dosage: UNK
     Route: 048
     Dates: start: 201306

REACTIONS (3)
  - Gastric disorder [Unknown]
  - Regurgitation [Unknown]
  - Frustration [Unknown]
